FAERS Safety Report 9105152 (Version 2)
Quarter: 2013Q4

REPORT INFORMATION
  Report Type: Spontaneous
  Country: US (occurrence: US)
  Receive Date: 20130220
  Receipt Date: 20131113
  Transmission Date: 20140711
  Serious: Yes (Hospitalization, Other)
  Sender: FDA-Public Use
  Company Number: US-AMGEN-USASP2013011126

PATIENT
  Age: 69 Year
  Sex: Female

DRUGS (2)
  1. ENBREL [Suspect]
     Indication: RHEUMATOID ARTHRITIS
     Dosage: 50 MG, QWK
     Route: 065
     Dates: start: 20020101
  2. VITAMIN D                          /00107901/ [Concomitant]
     Dosage: UNK

REACTIONS (35)
  - Gout [Unknown]
  - Loss of consciousness [Recovered/Resolved]
  - Foot fracture [Recovered/Resolved]
  - Vocal cord polyp [Recovered/Resolved]
  - Polyp [Recovered/Resolved]
  - Oesophageal polyp [Recovered/Resolved]
  - Uterine polyp [Recovered/Resolved]
  - Vaginal haemorrhage [Not Recovered/Not Resolved]
  - Food allergy [Not Recovered/Not Resolved]
  - Pain [Not Recovered/Not Resolved]
  - Musculoskeletal stiffness [Not Recovered/Not Resolved]
  - Skin discolouration [Recovered/Resolved]
  - Fall [Recovered/Resolved]
  - Amnesia [Not Recovered/Not Resolved]
  - Thyroid disorder [Not Recovered/Not Resolved]
  - Dry mouth [Not Recovered/Not Resolved]
  - Tooth disorder [Not Recovered/Not Resolved]
  - Pruritus generalised [Not Recovered/Not Resolved]
  - Blood pressure systolic increased [Not Recovered/Not Resolved]
  - Drug hypersensitivity [Not Recovered/Not Resolved]
  - Muscle swelling [Not Recovered/Not Resolved]
  - Malaise [Not Recovered/Not Resolved]
  - Asthenia [Not Recovered/Not Resolved]
  - Myalgia [Not Recovered/Not Resolved]
  - Vitamin B12 deficiency [Unknown]
  - Vitamin D deficiency [Unknown]
  - Gastrooesophageal reflux disease [Unknown]
  - Parathyroid disorder [Unknown]
  - Weight increased [Unknown]
  - Joint swelling [Not Recovered/Not Resolved]
  - Arthralgia [Not Recovered/Not Resolved]
  - Nasopharyngitis [Recovered/Resolved]
  - Herpes zoster [Not Recovered/Not Resolved]
  - Injection site pain [Not Recovered/Not Resolved]
  - Anaemia [Unknown]
